FAERS Safety Report 17685504 (Version 1)
Quarter: 2020Q2

REPORT INFORMATION
  Report Type: Spontaneous
  Country: US (occurrence: US)
  Receive Date: 20200420
  Receipt Date: 20200420
  Transmission Date: 20200714
  Serious: No
  Sender: FDA-Public Use
  Company Number: None

PATIENT
  Age: 35 Year
  Sex: Female
  Weight: 94.95 kg

DRUGS (6)
  1. PRENATAL [Concomitant]
     Active Substance: VITAMINS
  2. KLONOPIN [Concomitant]
     Active Substance: CLONAZEPAM
  3. GABAPENTIN. [Concomitant]
     Active Substance: GABAPENTIN
  4. VITAMIN B [Concomitant]
     Active Substance: VITAMIN B
  5. PRAZOSIN. [Suspect]
     Active Substance: PRAZOSIN
     Indication: POST-TRAUMATIC STRESS DISORDER
     Route: 048
     Dates: start: 20200409, end: 20200417
  6. ROSUVASTATIN. [Concomitant]
     Active Substance: ROSUVASTATIN

REACTIONS (5)
  - Diarrhoea [None]
  - Dizziness [None]
  - Nausea [None]
  - Headache [None]
  - Dry mouth [None]

NARRATIVE: CASE EVENT DATE: 20200418
